FAERS Safety Report 8218533-9 (Version None)
Quarter: 2012Q1

REPORT INFORMATION
  Report Type: 
  Country: None (occurrence: None)
  Receive Date: 20120319
  Receipt Date: 20120308
  Transmission Date: 20120608
  Serious: Yes (Death, Hospitalization)
  Sender: FDA-Public Use
  Company Number: US-ACTELION-A-NJ2011-50006

PATIENT

DRUGS (3)
  1. PLAVIX [Concomitant]
  2. TRACLEER [Suspect]
     Dosage: UNK
     Route: 048
     Dates: start: 20070606, end: 20110101
  3. TRACLEER [Suspect]
     Indication: PULMONARY ARTERIAL HYPERTENSION
     Dosage: UNK
     Route: 048
     Dates: start: 20110101

REACTIONS (6)
  - PULMONARY OEDEMA [None]
  - CARDIAC DISORDER [None]
  - ASPIRATION PLEURAL CAVITY [None]
  - DEATH [None]
  - OEDEMA PERIPHERAL [None]
  - LUNG DISORDER [None]
